FAERS Safety Report 6511423-9 (Version None)
Quarter: 2009Q4

REPORT INFORMATION
  Report Type: 
  Country: None (occurrence: None)
  Receive Date: 20091222
  Receipt Date: 20090313
  Transmission Date: 20100525
  Serious: No
  Sender: FDA-Public Use
  Company Number: US-ASTRAZENECA-2009UW06599

PATIENT
  Sex: Female
  Weight: 97.5 kg

DRUGS (5)
  1. CRESTOR [Suspect]
     Dosage: 10 MG
     Route: 048
  2. CRESTOR [Suspect]
     Route: 048
  3. ISOSORBIDE [Concomitant]
  4. DIOVAN [Concomitant]
  5. ATENOLOL [Concomitant]

REACTIONS (2)
  - HYPOAESTHESIA [None]
  - MUSCLE SPASMS [None]
